FAERS Safety Report 18322396 (Version 3)
Quarter: 2020Q4

REPORT INFORMATION
  Report Type: Report from Study
  Country: US (occurrence: US)
  Receive Date: 20200928
  Receipt Date: 20201118
  Transmission Date: 20210113
  Serious: Yes (Other)
  Sender: FDA-Public Use
  Company Number: US-GLAXOSMITHKLINE-US2020AMR192053

PATIENT
  Age: 70 Year
  Sex: Female
  Weight: 57.6 kg

DRUGS (3)
  1. NIRAPARIB [Suspect]
     Active Substance: NIRAPARIB
     Indication: OVARIAN CANCER
     Dosage: 200 MG, QD
     Dates: start: 20200915
  2. NIRAPARIB [Suspect]
     Active Substance: NIRAPARIB
     Dosage: 200 MG, QD
  3. NIRAPARIB [Suspect]
     Active Substance: NIRAPARIB
     Dosage: 200 MG, QD

REACTIONS (10)
  - Anxiety [Unknown]
  - Insomnia [Unknown]
  - Blood creatinine increased [Unknown]
  - Fatigue [Recovering/Resolving]
  - Condition aggravated [Unknown]
  - Blood count abnormal [Not Recovered/Not Resolved]
  - Blood pressure increased [Unknown]
  - Irritability [Unknown]
  - Renal impairment [Unknown]
  - Anaemia [Unknown]

NARRATIVE: CASE EVENT DATE: 202009
